FAERS Safety Report 8576018-4 (Version None)
Quarter: 2012Q3

REPORT INFORMATION
  Report Type: 
  Country: None (occurrence: None)
  Receive Date: 20120807
  Receipt Date: 20120727
  Transmission Date: 20120928
  Serious: Yes (Other)
  Sender: FDA-Public Use
  Company Number: AR-TEVA-348322ISR

PATIENT
  Sex: Female

DRUGS (3)
  1. METHOTREXATE [Suspect]
     Indication: RHEUMATOID ARTHRITIS
     Dosage: 2.1429 MILLIGRAM DAILY;
     Route: 048
     Dates: start: 20100608, end: 20120507
  2. ABATACEPT [Suspect]
     Indication: RHEUMATOID ARTHRITIS
     Dosage: 17.8571 MILLIGRAM DAILY;
     Route: 058
     Dates: start: 20100817, end: 20120508
  3. ADALIMUMAB [Suspect]
     Indication: RHEUMATOID ARTHRITIS
     Dosage: 2.8571 MILLIGRAM DAILY;
     Route: 058
     Dates: start: 20100817, end: 20120508

REACTIONS (1)
  - BREAST CANCER [None]
